FAERS Safety Report 6658174-8 (Version None)
Quarter: 2010Q1

REPORT INFORMATION
  Report Type: 
  Country: None (occurrence: None)
  Receive Date: 20100330
  Receipt Date: 20100323
  Transmission Date: 20100710
  Serious: Yes (Death)
  Sender: FDA-Public Use
  Company Number: B0642144A

PATIENT
  Age: 10 Year
  Sex: Female

DRUGS (2)
  1. SALBUTAMOL [Suspect]
     Indication: ASTHMA
     Dosage: 6U PER DAY
     Route: 055
  2. SERETIDE [Suspect]
     Indication: ASTHMA
     Dosage: 4U PER DAY
     Route: 055

REACTIONS (2)
  - ASTHMA [None]
  - OVERDOSE [None]
